FAERS Safety Report 8531750-3 (Version None)
Quarter: 2012Q3

REPORT INFORMATION
  Report Type: 
  Country: None (occurrence: None)
  Receive Date: 20120723
  Receipt Date: 20120712
  Transmission Date: 20120928
  Serious: Yes (Other)
  Sender: FDA-Public Use
  Company Number: JP-VERTEX PHARMACEUTICALS INC.-AE-2012-009999

PATIENT
  Age: 54 Year
  Sex: Male

DRUGS (12)
  1. ALLOPURINOL [Concomitant]
     Route: 048
     Dates: start: 20120514
  2. ANTEBATE [Concomitant]
     Route: 061
     Dates: start: 20120622
  3. REBETOL [Concomitant]
     Route: 048
     Dates: start: 20120526, end: 20120601
  4. REBETOL [Concomitant]
     Route: 048
     Dates: start: 20120609
  5. KENALOG [Concomitant]
     Route: 051
     Dates: start: 20120525, end: 20120601
  6. DEPAS [Concomitant]
     Route: 048
     Dates: start: 20120601
  7. LOXONIN [Concomitant]
     Route: 048
     Dates: start: 20120511
  8. LOCOID [Concomitant]
     Route: 061
     Dates: start: 20120622
  9. REBETOL [Concomitant]
     Indication: HEPATITIS C
     Route: 048
     Dates: start: 20120511, end: 20120525
  10. REBETOL [Concomitant]
     Route: 048
     Dates: start: 20120602, end: 20120608
  11. PEGINTERFERON ALFA-2B [Concomitant]
     Indication: HEPATITIS C
     Route: 058
     Dates: start: 20120511
  12. TELAVIC (TELAPREVIR) [Suspect]
     Indication: HEPATITIS C
     Route: 048
     Dates: start: 20120511

REACTIONS (1)
  - RASH [None]
